FAERS Safety Report 10370386 (Version 1)
Quarter: 2014Q3

REPORT INFORMATION
  Report Type: Spontaneous
  Country: US (occurrence: US)
  Receive Date: 20140808
  Receipt Date: 20140808
  Transmission Date: 20150326
  Serious: No
  Sender: FDA-Public Use
  Company Number: US-B.I. PHARMACEUTICALS,INC./RIDGEFIELD-2014-BI-35528BP

PATIENT
  Sex: Female
  Weight: 100 kg

DRUGS (19)
  1. GLUCOTROL [Concomitant]
     Active Substance: GLIPIZIDE
     Indication: TYPE 2 DIABETES MELLITUS
     Dosage: 10 MG
     Route: 048
     Dates: start: 2005
  2. ADVAIR HFA [Concomitant]
     Active Substance: FLUTICASONE PROPIONATE\SALMETEROL XINAFOATE
     Indication: ASTHMA
     Dosage: DOSE PER APP: 250 MCG/50 MCG; DAILY DOSE: 500 MCG/100 MCG
     Route: 055
     Dates: start: 2011
  3. PRADAXA [Suspect]
     Active Substance: DABIGATRAN ETEXILATE MESYLATE
     Indication: ATRIAL FIBRILLATION
     Dosage: 300 MG
     Route: 048
     Dates: start: 201404
  4. LASIX [Concomitant]
     Active Substance: FUROSEMIDE
     Indication: LOCAL SWELLING
     Dosage: 40 MG
     Route: 048
     Dates: start: 2009
  5. ZOCOR [Concomitant]
     Active Substance: SIMVASTATIN
     Indication: BLOOD CHOLESTEROL INCREASED
     Dosage: 20 MG
     Route: 048
     Dates: start: 2009
  6. ALBUTEROL SULFATE INHALER [Concomitant]
     Indication: ASTHMA
     Dosage: 2.5 MG
     Route: 055
     Dates: start: 2011
  7. TYLENOL WITH CODEINE [Concomitant]
     Active Substance: ACETAMINOPHEN\CODEINE PHOSPHATE
     Indication: PAIN
     Dosage: DOSE PER APPLICATION: 1 OR 2 TABLETS
     Route: 048
  8. LANOXIN [Concomitant]
     Active Substance: DIGOXIN
     Indication: HYPERTENSION
     Dosage: 250 MG
     Route: 048
     Dates: start: 201404
  9. PROAIR HFA [Concomitant]
     Active Substance: ALBUTEROL SULFATE
     Indication: ASTHMA
     Route: 055
     Dates: start: 2011
  10. PREDNISONE. [Concomitant]
     Active Substance: PREDNISONE
     Indication: ASTHMA
     Dosage: 10 MG
     Route: 048
     Dates: start: 201401
  11. TYLENOL WITH CODEINE [Concomitant]
     Active Substance: ACETAMINOPHEN\CODEINE PHOSPHATE
     Indication: HEADACHE
  12. RESTASIS [Concomitant]
     Active Substance: CYCLOSPORINE
     Indication: DRY EYE
     Dosage: DOSE PER APPLICATION: 1 DROP EACH EYE; DAILY DOSE: 2 DROPS EACH EYE
     Route: 050
     Dates: start: 2011
  13. JANUVIA [Concomitant]
     Active Substance: SITAGLIPTIN PHOSPHATE
     Indication: TYPE 2 DIABETES MELLITUS
     Dosage: 100 MG
     Route: 048
     Dates: start: 2005
  14. POTASSIUM [Concomitant]
     Active Substance: POTASSIUM
     Indication: BLOOD POTASSIUM DECREASED
     Dosage: 20 MEQ
     Route: 048
     Dates: start: 2009
  15. TOPROL XL [Concomitant]
     Active Substance: METOPROLOL SUCCINATE
     Indication: HYPERTENSION
     Dosage: 50 MG
     Route: 048
     Dates: start: 20140423
  16. DIOVAN [Concomitant]
     Active Substance: VALSARTAN
     Indication: HYPERTENSION
     Dosage: 160 MG
     Route: 048
     Dates: start: 2009
  17. ANTIVERT [Concomitant]
     Active Substance: MECLIZINE HYDROCHLORIDE
     Indication: DIZZINESS
     Route: 048
     Dates: start: 1994
  18. RESTASIS [Concomitant]
     Active Substance: CYCLOSPORINE
     Indication: INTRAOCULAR LENS IMPLANT
  19. TYLENOL WITH CODEINE [Concomitant]
     Active Substance: ACETAMINOPHEN\CODEINE PHOSPHATE
     Indication: ARTHRITIS

REACTIONS (1)
  - Blood glucose increased [Not Recovered/Not Resolved]
